FAERS Safety Report 4511987-0 (Version None)
Quarter: 2004Q4

REPORT INFORMATION
  Report Type: 
  Country: None (occurrence: None)
  Receive Date: 20041129
  Receipt Date: 20040226
  Transmission Date: 20050328
  Serious: Yes (Life-Threatening, Hospitalization)
  Sender: FDA-Public Use
  Company Number: US-BRISTOL-MYERS SQUIBB COMPANY-12525200

PATIENT
  Age: 53 Year
  Sex: Male

DRUGS (3)
  1. SUSTIVA [Suspect]
     Indication: HIV INFECTION
     Dosage: AT BEDTIME
     Route: 048
  2. COMBIVIR [Concomitant]
  3. BACTRIM [Concomitant]
     Indication: INFECTION PROPHYLAXIS

REACTIONS (1)
  - STEVENS-JOHNSON SYNDROME [None]
